FAERS Safety Report 4309853-9 (Version None)
Quarter: 2004Q1

REPORT INFORMATION
  Report Type: 
  Country: None (occurrence: None)
  Receive Date: 20040227
  Receipt Date: 20040129
  Transmission Date: 20041129
  Serious: No
  Sender: FDA-Public Use
  Company Number: FABR-10459

PATIENT
  Age: 21 Year
  Sex: Male
  Weight: 65.6 kg

DRUGS (3)
  1. FABRAZYME [Suspect]
     Indication: FABRY'S DISEASE
     Dosage: 70 MG Q2WKS IV
     Dates: start: 20031118
  2. ACETAMINOPHEN [Concomitant]
  3. HYDROXYZINE [Concomitant]

REACTIONS (5)
  - ABDOMINAL PAIN [None]
  - CHEST DISCOMFORT [None]
  - FLUSHING [None]
  - NAUSEA [None]
  - VOMITING [None]
